FAERS Safety Report 4295955-2 (Version None)
Quarter: 2004Q1

REPORT INFORMATION
  Report Type: 
  Country: None (occurrence: None)
  Receive Date: 20040212
  Receipt Date: 20040204
  Transmission Date: 20041129
  Serious: Yes (Life-Threatening)
  Sender: FDA-Public Use
  Company Number: 2004AP00579

PATIENT
  Age: 79 Year
  Sex: Female

DRUGS (3)
  1. DIPRIVAN [Suspect]
     Indication: SEDATION
     Dosage: 3 ML /HR
     Dates: start: 20040128, end: 20040128
  2. PALUX [Concomitant]
  3. ENDOXAN [Concomitant]

REACTIONS (2)
  - HYPOGLYCAEMIA [None]
  - PULMONARY OEDEMA [None]
